FAERS Safety Report 7618333-4 (Version None)
Quarter: 2011Q3

REPORT INFORMATION
  Report Type: 
  Country: None (occurrence: None)
  Receive Date: 20110718
  Receipt Date: 20110708
  Transmission Date: 20111222
  Serious: Yes (Death, Other)
  Sender: FDA-Public Use
  Company Number: JP-BAYER-200912849BYL

PATIENT
  Age: 82 Year
  Sex: Male
  Weight: 65.7 kg

DRUGS (13)
  1. FAMOTIDINE [Concomitant]
     Dosage: FROM BEFORE ADMINISTRATION
     Route: 048
  2. LIVACT [Concomitant]
     Dosage: FROM BEFORE ADMINISTRATION
     Route: 048
  3. CALCICOL [Concomitant]
     Dosage: FROM BEFORE ADMINISTRATION
     Route: 048
  4. SHAKUYAKUKANZOUTOU [Concomitant]
     Dosage: FROM BEFORE ADMINISTRATION
     Route: 048
  5. NEXAVAR [Suspect]
     Indication: HEPATIC NEOPLASM MALIGNANT
     Route: 048
     Dates: start: 20090626, end: 20090807
  6. LASIX [Concomitant]
     Dosage: 20 MG (DAILY DOSE), , ORAL
     Route: 048
     Dates: start: 20090807
  7. GLYCYRON [Concomitant]
     Dosage: FROM BEFORE ADMINISTRATION
     Route: 048
  8. DOMPERIDONE [Concomitant]
     Dosage: FROM BEFORE ADMINISTRATION
     Route: 048
  9. NEXAVAR [Suspect]
     Dosage: 200 MG (DAILY DOSE), , ORAL
     Route: 048
     Dates: start: 20090901, end: 20090917
  10. ADALAT CC [Concomitant]
     Dosage: FROM BEFORE ADMINISTRATION
     Route: 048
  11. KETOPROFEN [Concomitant]
     Dosage: FROM BEFORE ADMINISTRATION
     Route: 061
  12. ALDACTONE [Concomitant]
     Dosage: 25 MG (DAILY DOSE), , ORAL
     Route: 048
     Dates: start: 20090807
  13. NEXAVAR [Suspect]
     Route: 048
     Dates: start: 20090821, end: 20090901

REACTIONS (5)
  - HEPATIC NEOPLASM MALIGNANT [None]
  - HYPERAMMONAEMIA [None]
  - HEPATIC ENCEPHALOPATHY [None]
  - HEPATIC FUNCTION ABNORMAL [None]
  - ASCITES [None]
